FAERS Safety Report 21802791 (Version 1)
Quarter: 2022Q4

REPORT INFORMATION
  Report Type: Spontaneous
  Country: US (occurrence: None)
  Receive Date: 20221231
  Receipt Date: 20221231
  Transmission Date: 20230112
  Serious: No
  Sender: FDA-Public Use
  Company Number: 2022A401519

PATIENT
  Age: 56 Year
  Sex: Female

DRUGS (1)
  1. FASENRA [Suspect]
     Active Substance: BENRALIZUMAB
     Indication: Asthma
     Dosage: 30MG/ML EVERY EIGHT WEEKS
     Route: 058

REACTIONS (6)
  - Fear of injection [Not Recovered/Not Resolved]
  - Nervousness [Unknown]
  - Injection site erythema [Recovered/Resolved]
  - Incorrect dose administered by device [Unknown]
  - Device use issue [Unknown]
  - Wrong technique in device usage process [Unknown]

NARRATIVE: CASE EVENT DATE: 20221206
